FAERS Safety Report 20975391 (Version 2)
Quarter: 2022Q3

REPORT INFORMATION
  Report Type: Spontaneous
  Country: AT (occurrence: AT)
  Receive Date: 20220617
  Receipt Date: 20220701
  Transmission Date: 20221026
  Serious: Yes (Other)
  Sender: FDA-Public Use
  Company Number: AT-BoehringerIngelheim-2022-BI-176901

PATIENT
  Age: 74 Year
  Sex: Male
  Weight: 77 kg

DRUGS (2)
  1. PRAMIPEXOLE [Suspect]
     Active Substance: PRAMIPEXOLE
     Indication: Restless legs syndrome
     Dosage: PATIENT TOOK DOSE 0.52 MG ONLY ONCE, OTHERWISE ALWAYS 0.26 MG.
  2. PRAMIPEXOLE [Suspect]
     Active Substance: PRAMIPEXOLE
     Dosage: PATIENT TOOK DOSE 0.52 MG ONLY ONCE, OTHERWISE ALWAYS 0.26 MG.

REACTIONS (1)
  - Circulatory collapse [Recovered/Resolved]
